FAERS Safety Report 14027967 (Version 1)
Quarter: 2017Q3

REPORT INFORMATION
  Report Type: Spontaneous
  Country: US (occurrence: None)
  Receive Date: 20170929
  Receipt Date: 20170929
  Transmission Date: 20171128
  Serious: Yes (Life-Threatening, Hospitalization)
  Sender: FDA-Public Use
  Company Number: None

PATIENT
  Age: 62 Year
  Sex: Male
  Weight: 69 kg

DRUGS (2)
  1. LISINOPRIL. [Suspect]
     Active Substance: LISINOPRIL
     Indication: ASTHMA
     Route: 048
     Dates: start: 20160628, end: 20170831
  2. LISINOPRIL. [Suspect]
     Active Substance: LISINOPRIL
     Indication: ANGIOEDEMA
     Route: 048
     Dates: start: 20160628, end: 20170831

REACTIONS (3)
  - Wheezing [None]
  - Angioedema [None]
  - Cough [None]

NARRATIVE: CASE EVENT DATE: 20170831
